FAERS Safety Report 24947537 (Version 1)
Quarter: 2025Q1

REPORT INFORMATION
  Report Type: Spontaneous
  Country: US (occurrence: US)
  Receive Date: 20250210
  Receipt Date: 20250210
  Transmission Date: 20250408
  Serious: No
  Sender: Kenvue
  Company Number: US-KENVUE-20250106068

PATIENT
  Sex: Female

DRUGS (5)
  1. TYLENOL [Suspect]
     Active Substance: ACETAMINOPHEN
     Indication: Headache
     Route: 065
     Dates: start: 2024, end: 2024
  2. ORENITRAM [Concomitant]
     Active Substance: TREPROSTINIL
     Indication: Pulmonary arterial hypertension
     Dosage: 1 MILLIGRAM, THRICE A DAY
     Route: 048
     Dates: start: 20241011
  3. ORENITRAM [Concomitant]
     Active Substance: TREPROSTINIL
     Dosage: 0.875 MILLIGRAM, THRICE A DAY
     Route: 048
     Dates: start: 202411
  4. ORENITRAM [Concomitant]
     Active Substance: TREPROSTINIL
     Dosage: 1.5 MILLIGRAM, THRICE A DAY
     Route: 048
     Dates: start: 202412
  5. EXCEDRIN [Concomitant]
     Active Substance: ACETAMINOPHEN\ASPIRIN\CAFFEINE
     Indication: Headache
     Route: 065
     Dates: start: 2024

REACTIONS (1)
  - Product use in unapproved indication [Unknown]

NARRATIVE: CASE EVENT DATE: 20240101
